FAERS Safety Report 18053592 (Version 2)
Quarter: 2025Q2

REPORT INFORMATION
  Report Type: Spontaneous
  Country: GB (occurrence: ES)
  Receive Date: 20200722
  Receipt Date: 20250628
  Transmission Date: 20250716
  Serious: Yes (Other)
  Sender: AUROBINDO
  Company Number: ES-MACLEODS PHARMACEUTICALS US LTD-MAC2020027309

PATIENT
  Age: 56 Year
  Sex: Female

DRUGS (5)
  1. MOXIFLOXACIN [Suspect]
     Active Substance: MOXIFLOXACIN
     Indication: Pneumonia pneumococcal
     Dosage: 400 MILLIGRAM, ONCE A DAY
     Route: 065
  2. VANCOMYCIN [Suspect]
     Active Substance: VANCOMYCIN
     Indication: Pneumonia pneumococcal
     Route: 065
  3. CLINDAMYCIN [Suspect]
     Active Substance: CLINDAMYCIN
     Indication: Pneumonia pneumococcal
     Route: 065
  4. OSELTAMIVIR [Suspect]
     Active Substance: OSELTAMIVIR
     Indication: Pneumonia pneumococcal
     Route: 065
  5. RIFAMPIN [Suspect]
     Active Substance: RIFAMPIN
     Indication: Pneumonia pneumococcal
     Route: 065

REACTIONS (2)
  - Iridocyclitis [Recovering/Resolving]
  - Pigment dispersion syndrome [Recovering/Resolving]
